FAERS Safety Report 7381414-7 (Version None)
Quarter: 2011Q1

REPORT INFORMATION
  Report Type: 
  Country: None (occurrence: None)
  Receive Date: 20110324
  Receipt Date: 20110324
  Transmission Date: 20110831
  Serious: Yes (Other)
  Sender: FDA-Public Use
  Company Number: None

PATIENT
  Age: 61 Year
  Sex: Male
  Weight: 87.9978 kg

DRUGS (1)
  1. DOCETAXEL [Suspect]
     Dosage: 160 MG ONCE IV INFUSED OVER 60 MINS
     Route: 042
     Dates: start: 20110110

REACTIONS (3)
  - RASH [None]
  - INFLUENZA LIKE ILLNESS [None]
  - RECALL PHENOMENON [None]
